FAERS Safety Report 6738173-8 (Version None)
Quarter: 2010Q2

REPORT INFORMATION
  Report Type: 
  Country: None (occurrence: None)
  Receive Date: 20100520
  Receipt Date: 20100505
  Transmission Date: 20101027
  Serious: Yes (Hospitalization)
  Sender: FDA-Public Use
  Company Number: US-002022

PATIENT
  Sex: Male

DRUGS (4)
  1. PROSED/DS (NOT SPECIFIED) [Suspect]
     Indication: MUSCLE SPASMS
     Dosage: (ONLY TOOK 2 TABLETS IN TOTAL 91 TABLET EACH DAY) ORAL)
     Route: 048
     Dates: start: 20100430, end: 20100501
  2. AVELOX [Concomitant]
  3. TOPROL-XL [Concomitant]
  4. VITAMIN TAB [Concomitant]

REACTIONS (17)
  - ACTIVITIES OF DAILY LIVING IMPAIRED [None]
  - AGITATION [None]
  - AMNESIA [None]
  - CHROMATURIA [None]
  - DISORIENTATION [None]
  - DYSARTHRIA [None]
  - FALL [None]
  - GAIT DISTURBANCE [None]
  - HYPERSENSITIVITY [None]
  - MENTAL STATUS CHANGES [None]
  - PNEUMONIA [None]
  - REPETITIVE SPEECH [None]
  - RESTLESSNESS [None]
  - SOMNOLENCE [None]
  - SPEECH DISORDER [None]
  - UNRESPONSIVE TO STIMULI [None]
  - VISION BLURRED [None]
